FAERS Safety Report 10261291 (Version 1)
Quarter: 2014Q2

REPORT INFORMATION
  Report Type: Spontaneous
  Country: GB (occurrence: GB)
  Receive Date: 20140626
  Receipt Date: 20140626
  Transmission Date: 20141212
  Serious: Yes (Hospitalization, Disabling)
  Sender: FDA-Public Use
  Company Number: GB-ORION CORPORATION ORION PHARMA-ENTC2014-0218

PATIENT
  Age: 81 Year
  Sex: Male
  Weight: 67 kg

DRUGS (7)
  1. STALEVO [Suspect]
     Indication: PARKINSON^S DISEASE
     Route: 048
     Dates: start: 201302, end: 20140523
  2. DOCUSATE [Concomitant]
     Route: 065
  3. LANSOPRAZOLE [Concomitant]
     Route: 065
  4. LAXIDO [Concomitant]
     Route: 065
  5. PARACETAMOL [Concomitant]
     Route: 065
  6. ROTIGOTINE [Concomitant]
     Route: 065
  7. TAMSULOSIN [Concomitant]
     Route: 065

REACTIONS (2)
  - Haemolytic anaemia [Recovering/Resolving]
  - Weight decreased [Unknown]
